FAERS Safety Report 9513271 (Version 1)
Quarter: 2013Q1

REPORT INFORMATION
  Report Type: Spontaneous
  Country: US (occurrence: None)
  Receive Date: 20130305
  Receipt Date: 20130305
  Transmission Date: 20140127
  Serious: No
  Sender: FDA-Public Use
  Company Number: 163-21880-12021730

PATIENT
  Age: 64 Year
  Sex: Male

DRUGS (11)
  1. REVLIMID (LENALIDOMIDE) (CAPSULES) [Suspect]
     Indication: PLASMA CELL MYELOMA
     Route: 048
     Dates: start: 201111, end: 201112
  2. LOVENOX (HEPARIN-FRACTION, SODIUM SALT) [Concomitant]
  3. COUMADIN (WARFARIN SODIUM) [Concomitant]
  4. ASPIRIN (ACETYLSALICYLIC ACID) [Concomitant]
  5. VELCADE (BORTEZOMIB) [Concomitant]
  6. DECADRON (DEXAMETHASONE) [Concomitant]
  7. ATENOLOL (ATENOLOL) [Concomitant]
  8. DIOVAN/HYDROCHLOROTHIAZIDE (CO-DIOVAN) [Concomitant]
  9. ACYCLOVIR (ACICLOVIR) [Concomitant]
  10. DIFLUCAN (FLUCONAZOLE) [Concomitant]
  11. BACTRIM (BACTRIM) [Concomitant]

REACTIONS (1)
  - Gastrointestinal haemorrhage [None]
